FAERS Safety Report 25986509 (Version 1)
Quarter: 2025Q4

REPORT INFORMATION
  Report Type: Spontaneous
  Country: EU (occurrence: EU)
  Receive Date: 20251101
  Receipt Date: 20251101
  Transmission Date: 20260119
  Serious: Yes (Other)
  Sender: HETERO
  Company Number: None

PATIENT
  Age: 45 Year
  Sex: Male
  Weight: 92 kg

DRUGS (2)
  1. GABAPENTIN [Suspect]
     Active Substance: GABAPENTIN
     Indication: Sciatica
     Dosage: 100 MILLIGRAM, QD
     Route: 048
     Dates: start: 20251002, end: 20251007
  2. GABAPENTIN [Suspect]
     Active Substance: GABAPENTIN
     Dosage: 100 MILLIGRAM, BID
     Route: 048
     Dates: start: 20251008, end: 20251015

REACTIONS (1)
  - Suicidal ideation [Recovered/Resolved]

NARRATIVE: CASE EVENT DATE: 20251003
